FAERS Safety Report 9649569 (Version 1)
Quarter: 2013Q4

REPORT INFORMATION
  Report Type: Report from Study
  Country: US (occurrence: US)
  Receive Date: 20131028
  Receipt Date: 20131028
  Transmission Date: 20140711
  Serious: Yes (Other)
  Sender: FDA-Public Use
  Company Number: US-ROCHE-1295230

PATIENT
  Sex: 0

DRUGS (2)
  1. RITUXAN [Suspect]
     Indication: CHRONIC LYMPHOCYTIC LEUKAEMIA
     Route: 065
  2. RITUXAN [Suspect]
     Indication: NON-HODGKIN^S LYMPHOMA

REACTIONS (7)
  - Infusion related reaction [Unknown]
  - Cardiogenic shock [Not Recovered/Not Resolved]
  - Hypotension [Not Recovered/Not Resolved]
  - Bronchospasm [Not Recovered/Not Resolved]
  - Lung infiltration [Not Recovered/Not Resolved]
  - Myocardial infarction [Not Recovered/Not Resolved]
  - Angioedema [Not Recovered/Not Resolved]
